FAERS Safety Report 6190808-7 (Version None)
Quarter: 2009Q2

REPORT INFORMATION
  Report Type: 
  Country: None (occurrence: None)
  Receive Date: 20090514
  Receipt Date: 20090507
  Transmission Date: 20091009
  Serious: Yes (Other)
  Sender: FDA-Public Use
  Company Number: PHEH2008US07467

PATIENT
  Sex: Male

DRUGS (4)
  1. ZOMETA [Suspect]
     Dosage: UNK
     Dates: end: 20071101
  2. THALIDOMIDE [Concomitant]
  3. STEROIDS NOS [Concomitant]
  4. CHEMOTHERAPEUTICS NOS [Concomitant]

REACTIONS (16)
  - ANHEDONIA [None]
  - ANXIETY [None]
  - BONE DISORDER [None]
  - DEPRESSION [None]
  - ENDODONTIC PROCEDURE [None]
  - HYPERTENSION [None]
  - INJURY [None]
  - INTESTINAL OBSTRUCTION [None]
  - MASTICATION DISORDER [None]
  - MENTAL DISORDER [None]
  - MULTIPLE MYELOMA [None]
  - OSTEONECROSIS [None]
  - PAIN [None]
  - PAIN IN JAW [None]
  - SUICIDAL IDEATION [None]
  - TOOTH EXTRACTION [None]
